FAERS Safety Report 7324232-8 (Version None)
Quarter: 2011Q1

REPORT INFORMATION
  Report Type: 
  Country: None (occurrence: None)
  Receive Date: 20110301
  Receipt Date: 20110224
  Transmission Date: 20110831
  Serious: Yes (Death)
  Sender: FDA-Public Use
  Company Number: US-AMGEN-USASP2011011029

PATIENT
  Sex: Female

DRUGS (2)
  1. NPLATE [Suspect]
     Indication: IDIOPATHIC THROMBOCYTOPENIC PURPURA
     Dates: start: 20101203, end: 20101221
  2. CORTICOSTEROIDS [Concomitant]

REACTIONS (2)
  - CEREBRAL HAEMORRHAGE [None]
  - DISEASE PROGRESSION [None]
